FAERS Safety Report 11203215 (Version 1)
Quarter: 2015Q2

REPORT INFORMATION
  Report Type: Spontaneous
  Country: US (occurrence: US)
  Receive Date: 20150619
  Receipt Date: 20150619
  Transmission Date: 20150821
  Serious: No
  Sender: FDA-Public Use
  Company Number: US-PFIZER INC-2015200091

PATIENT
  Sex: Male

DRUGS (3)
  1. GLIPIZIDE. [Suspect]
     Active Substance: GLIPIZIDE
     Dosage: UNK
  2. VICTOZA [Suspect]
     Active Substance: LIRAGLUTIDE
     Dosage: UNK
  3. VICTOZA [Suspect]
     Active Substance: LIRAGLUTIDE
     Dosage: 1.2 MG, UNK

REACTIONS (6)
  - Decreased appetite [Unknown]
  - Abdominal pain upper [Unknown]
  - Flatulence [Unknown]
  - Eructation [Unknown]
  - Constipation [Unknown]
  - Dysgeusia [Unknown]
